FAERS Safety Report 12256404 (Version 3)
Quarter: 2018Q3

REPORT INFORMATION
  Report Type: Report from Study
  Country: CA (occurrence: CA)
  Receive Date: 20160412
  Receipt Date: 20180810
  Transmission Date: 20181010
  Serious: Yes (Death, Hospitalization, Other)
  Sender: FDA-Public Use
  Company Number: PHHY2016CA047147

PATIENT
  Age: 76 Year
  Sex: Female

DRUGS (39)
  1. ACLASTA [Suspect]
     Active Substance: ZOLEDRONIC ACID
     Dosage: 1 DF, UNK
     Route: 042
     Dates: start: 20120202
  2. ALUGEL [Concomitant]
     Indication: PRODUCT USED FOR UNKNOWN INDICATION
     Dosage: 1 DF (30 CC), BID PRN
     Route: 065
     Dates: start: 20160112
  3. TUMS [Concomitant]
     Active Substance: CALCIUM CARBONATE
     Indication: PRODUCT USED FOR UNKNOWN INDICATION
     Dosage: 500 MG, BID
     Route: 048
     Dates: start: 20160112
  4. ACLASTA [Suspect]
     Active Substance: ZOLEDRONIC ACID
     Dosage: 1 DF, UNK
     Route: 042
     Dates: start: 20100122
  5. ACLASTA [Suspect]
     Active Substance: ZOLEDRONIC ACID
     Dosage: 1 DF, UNK
     Route: 042
     Dates: start: 20160612
  6. ACLASTA [Suspect]
     Active Substance: ZOLEDRONIC ACID
     Dosage: 1 DF, UNK
     Route: 042
     Dates: start: 20170608, end: 20170608
  7. COLACE [Concomitant]
     Active Substance: DOCUSATE SODIUM
     Indication: PRODUCT USED FOR UNKNOWN INDICATION
     Dosage: 100 MG, BID FOR 3 MONTHS
     Route: 065
     Dates: start: 20170106
  8. LAX?A?DAY [Concomitant]
     Indication: PRODUCT USED FOR UNKNOWN INDICATION
     Dosage: 17 G, QD
     Route: 065
     Dates: start: 20111007
  9. SINEMET [Concomitant]
     Active Substance: CARBIDOPA\LEVODOPA
     Indication: PRODUCT USED FOR UNKNOWN INDICATION
     Dosage: AT 0700,1300,1900 2 EACH TIME, BUT 2.5 TABS AT 1000/1600 HRS
     Route: 065
     Dates: start: 20070611
  10. PNEUMO 23 [Concomitant]
     Active Substance: PNEUMOCOCCAL VACCINE, POLYVALENT 23
     Indication: PRODUCT USED FOR UNKNOWN INDICATION
     Dosage: UNK
     Route: 065
     Dates: start: 19991213
  11. VAXIGRIP [Concomitant]
     Active Substance: INFLUENZA VIRUS VACCINE
     Indication: PRODUCT USED FOR UNKNOWN INDICATION
     Dosage: UNK
     Route: 065
     Dates: start: 20061102
  12. VAXIGRIP [Concomitant]
     Active Substance: INFLUENZA VIRUS VACCINE
     Dosage: UNK
     Route: 065
     Dates: start: 20071103
  13. FLUVIRAL [Concomitant]
     Active Substance: INFLUENZA VIRUS VACCINE
     Dosage: UNK
     Route: 065
     Dates: start: 20100112
  14. PROLIA [Concomitant]
     Active Substance: DENOSUMAB
     Indication: PRODUCT USED FOR UNKNOWN INDICATION
     Dosage: 1 DF, UNK
     Route: 065
     Dates: start: 20150923
  15. MIRTAZAPINE. [Concomitant]
     Active Substance: MIRTAZAPINE
     Indication: PRODUCT USED FOR UNKNOWN INDICATION
     Dosage: 45 MG, QHS FOR 3 MONTHS
     Route: 048
     Dates: start: 20160112
  16. HYDROMORPH CONTIN [Concomitant]
     Active Substance: HYDROMORPHONE
     Indication: PRODUCT USED FOR UNKNOWN INDICATION
     Dosage: 2 DF, BID FOR 3 MONTHS
     Route: 048
     Dates: start: 20160112
  17. TECTA [Concomitant]
     Active Substance: PANTOPRAZOLE MAGNESIUM
     Indication: PRODUCT USED FOR UNKNOWN INDICATION
     Dosage: 40 MG, QD FOR 3 MONTHS
     Route: 048
     Dates: start: 20160112
  18. PRISTIQ EXTENDED?RELEASE [Concomitant]
     Active Substance: DESVENLAFAXINE SUCCINATE
     Indication: PRODUCT USED FOR UNKNOWN INDICATION
     Dosage: 50 MG, BID
     Route: 065
     Dates: start: 20101002
  19. DOMPERIDONE MALEATE [Concomitant]
     Active Substance: DOMPERIDONE MALEATE
     Indication: PRODUCT USED FOR UNKNOWN INDICATION
     Dosage: 5 MG, TID (BEFORE MEALS AND HS)
     Route: 065
     Dates: start: 20150304
  20. HYDROMORPHONE [Concomitant]
     Active Substance: HYDROMORPHONE
     Indication: PRODUCT USED FOR UNKNOWN INDICATION
     Dosage: 2 DF, REGULARLY THEN 1?2 TABS Q2?4 HRS PRN MAX 12 TABS PER 24 HRS
     Route: 065
     Dates: start: 20160112
  21. DULCOLAX NOS [Concomitant]
     Active Substance: BISACODYL OR DOCUSATE SODIUM
     Indication: PRODUCT USED FOR UNKNOWN INDICATION
     Dosage: 1 DF, QD AS NEEDED
     Route: 065
     Dates: start: 20180202
  22. BOOST [Concomitant]
     Active Substance: DIETARY SUPPLEMENT
     Dosage: 237 ML, QD
     Route: 065
     Dates: start: 20161031
  23. NORVASC [Concomitant]
     Active Substance: AMLODIPINE BESYLATE
     Dosage: 5 MG, QD FOR 90 DAYS
     Route: 065
     Dates: start: 20180413
  24. FLUVACCIN [Concomitant]
     Active Substance: INFLUENZA VIRUS VACCINE
     Indication: PRODUCT USED FOR UNKNOWN INDICATION
     Dosage: UNK
     Route: 065
     Dates: start: 20171027
  25. ACLASTA [Suspect]
     Active Substance: ZOLEDRONIC ACID
     Dosage: 1 DF, UNK
     Route: 042
     Dates: start: 20150402
  26. TAMIFLU [Concomitant]
     Active Substance: OSELTAMIVIR PHOSPHATE
     Indication: INFLUENZA
     Dosage: 30 MG, BID PRN
     Route: 065
     Dates: start: 20161031
  27. BISOPROLOL FUMERATE [Concomitant]
     Active Substance: BISOPROLOL FUMARATE
     Indication: PRODUCT USED FOR UNKNOWN INDICATION
     Dosage: 5 MG, QD FOR 3 MONTHS
     Route: 065
     Dates: start: 20070531
  28. LACTULOSE. [Concomitant]
     Active Substance: LACTULOSE
     Indication: PRODUCT USED FOR UNKNOWN INDICATION
     Dosage: 30?60 CC, QHS
     Route: 065
     Dates: start: 20160112
  29. BOOST [Concomitant]
     Active Substance: DIETARY SUPPLEMENT
     Indication: NUTRITIONAL SUPPLEMENTATION
     Dosage: UNK
     Route: 065
     Dates: start: 20160119
  30. NORVASC [Concomitant]
     Active Substance: AMLODIPINE BESYLATE
     Indication: PRODUCT USED FOR UNKNOWN INDICATION
     Dosage: 2.5 MG, QD FOR ONE WEEK
     Route: 065
  31. FLUVIRAL [Concomitant]
     Active Substance: INFLUENZA VIRUS VACCINE
     Dosage: UNK
     Route: 065
     Dates: start: 20101014
  32. ACLASTA [Suspect]
     Active Substance: ZOLEDRONIC ACID
     Indication: OSTEOPOROSIS
     Dosage: 1 DF, UNK
     Route: 042
     Dates: start: 20081114
  33. ACLASTA [Suspect]
     Active Substance: ZOLEDRONIC ACID
     Dosage: 1 DF, UNK
     Route: 042
     Dates: start: 20130221
  34. ACLASTA [Suspect]
     Active Substance: ZOLEDRONIC ACID
     Dosage: 1 DF, UNK
     Route: 042
     Dates: start: 20140220
  35. BACTROBAN [Concomitant]
     Active Substance: MUPIROCIN\MUPIROCIN CALCIUM
     Indication: INFECTED CYST
     Dosage: UNK UNK, BID
     Route: 065
     Dates: start: 20171019
  36. VITAMIN D3 [Concomitant]
     Active Substance: CHOLECALCIFEROL
     Indication: PRODUCT USED FOR UNKNOWN INDICATION
     Dosage: 1000 IU, BID FOR 3 MONTHS
     Route: 065
     Dates: start: 20090217
  37. VAXIGRIP [Concomitant]
     Active Substance: INFLUENZA VIRUS VACCINE
     Dosage: UNK
     Route: 065
     Dates: start: 20131104
  38. FLUVIRAL [Concomitant]
     Active Substance: INFLUENZA VIRUS VACCINE
     Indication: PRODUCT USED FOR UNKNOWN INDICATION
     Dosage: UNK
     Route: 065
     Dates: start: 20081020
  39. FLUVIRAL [Concomitant]
     Active Substance: INFLUENZA VIRUS VACCINE
     Dosage: UNK
     Route: 065
     Dates: start: 20121107

REACTIONS (46)
  - Sternal fracture [Unknown]
  - Blood immunoglobulin G increased [Unknown]
  - Humerus fracture [Unknown]
  - Neck pain [Unknown]
  - Anxiety [Unknown]
  - Asthenia [Unknown]
  - Fall [Unknown]
  - Abdominal infection [Unknown]
  - Orthostatic hypotension [Unknown]
  - Serum ferritin increased [Unknown]
  - Ischaemia [Unknown]
  - Anastomotic leak [Unknown]
  - Pelvic abscess [Unknown]
  - Weight decreased [Unknown]
  - Abdominal pain [Fatal]
  - Abdominal distension [Fatal]
  - Major depression [Unknown]
  - Multiple fractures [Not Recovered/Not Resolved]
  - Renal failure [Unknown]
  - Hyperprolactinaemia [Recovered/Resolved]
  - Arteriosclerosis [Unknown]
  - Procedural complication [Unknown]
  - Actinic keratosis [Unknown]
  - Gastrointestinal haemorrhage [Fatal]
  - Melaena [Fatal]
  - Aortic dissection [Unknown]
  - Penetrating aortic ulcer [Fatal]
  - Large intestine perforation [Fatal]
  - Diverticulitis [Unknown]
  - Nausea [Unknown]
  - Peritonitis [Unknown]
  - Spinal compression fracture [Unknown]
  - Dizziness [Unknown]
  - Affective disorder [Unknown]
  - Constipation [Unknown]
  - Pain [Unknown]
  - Aortic aneurysm [Fatal]
  - Back pain [Unknown]
  - Pain in extremity [Unknown]
  - Arthritis [Unknown]
  - Localised infection [Unknown]
  - Abscess [Unknown]
  - Post procedural bile leak [Unknown]
  - Hydronephrosis [Unknown]
  - Carpal tunnel syndrome [Unknown]
  - Dysphagia [Unknown]

NARRATIVE: CASE EVENT DATE: 200812
